FAERS Safety Report 9668369 (Version 1)
Quarter: 2013Q4

REPORT INFORMATION
  Report Type: Spontaneous
  Country: CN (occurrence: CN)
  Receive Date: 20131104
  Receipt Date: 20131104
  Transmission Date: 20140711
  Serious: Yes (Hospitalization)
  Sender: FDA-Public Use
  Company Number: PHHY2013CN124715

PATIENT
  Age: 41 Year
  Sex: Female
  Weight: 46 kg

DRUGS (1)
  1. TEGRETOL [Suspect]
     Indication: HEADACHE
     Dosage: 0.1 G, TID
     Route: 048
     Dates: start: 20121012, end: 20121021

REACTIONS (4)
  - Mucosal hyperaemia [Recovered/Resolved]
  - Mucosal erosion [Recovered/Resolved]
  - Arthralgia [Recovered/Resolved]
  - Rash [Recovered/Resolved]
